FAERS Safety Report 5837532-5 (Version None)
Quarter: 2008Q3

REPORT INFORMATION
  Report Type: 
  Country: None (occurrence: None)
  Receive Date: 20080807
  Receipt Date: 20080729
  Transmission Date: 20090109
  Serious: Yes (Hospitalization, Other)
  Sender: FDA-Public Use
  Company Number: US-PFIZER INC-2008063149

PATIENT
  Sex: Female
  Weight: 96.1 kg

DRUGS (6)
  1. GLUCOTROL [Suspect]
     Indication: DIABETES MELLITUS
  2. GLIPIZIDE [Suspect]
     Indication: DIABETES MELLITUS
     Dosage: TEXT:1 TABLET
     Route: 048
  3. METFORMIN HYDROCHLORIDE [Suspect]
     Indication: DIABETES MELLITUS
     Route: 048
  4. LANTUS [Suspect]
     Indication: DIABETES MELLITUS
  5. PLAVIX [Concomitant]
  6. ANTIHYPERTENSIVES [Concomitant]

REACTIONS (8)
  - ABDOMINAL PAIN UPPER [None]
  - BLOOD GLUCOSE FLUCTUATION [None]
  - BRONCHITIS CHRONIC [None]
  - CARDIAC FAILURE [None]
  - CARDIAC FAILURE CONGESTIVE [None]
  - DECREASED ACTIVITY [None]
  - DIABETES MELLITUS INADEQUATE CONTROL [None]
  - DRUG INTOLERANCE [None]
